FAERS Safety Report 4288650-7 (Version None)
Quarter: 2004Q1

REPORT INFORMATION
  Report Type: 
  Country: None (occurrence: None)
  Receive Date: 20040205
  Receipt Date: 20040203
  Transmission Date: 20041129
  Serious: Yes (Death, Hospitalization)
  Sender: FDA-Public Use
  Company Number: GB-JNJFOC-20040200439

PATIENT
  Age: 47 Year
  Sex: Male

DRUGS (1)
  1. ITRACONAZOLE [Suspect]
     Indication: ASPERGILLOSIS
     Dosage: SEE IMAGE

REACTIONS (17)
  - ABDOMINAL PAIN [None]
  - ASTHENIA [None]
  - CEREBRAL ASPERGILLOSIS [None]
  - CEREBRAL VENTRICLE DILATATION [None]
  - CEREBROVASCULAR INSUFFICIENCY [None]
  - CONDITION AGGRAVATED [None]
  - CONFUSIONAL STATE [None]
  - CSF TEST ABNORMAL [None]
  - HYDROCEPHALUS [None]
  - INTRACRANIAL PRESSURE INCREASED [None]
  - MENTAL IMPAIRMENT [None]
  - NAUSEA [None]
  - PYREXIA [None]
  - SHUNT INFECTION [None]
  - SOMNOLENCE [None]
  - STAPHYLOCOCCAL INFECTION [None]
  - VOMITING [None]
